FAERS Safety Report 5367037-X (Version None)
Quarter: 2007Q2

REPORT INFORMATION
  Report Type: 
  Country: None (occurrence: None)
  Receive Date: 20070622
  Receipt Date: 20070619
  Transmission Date: 20071010
  Serious: Yes (Hospitalization)
  Sender: FDA-Public Use
  Company Number: A0658263A

PATIENT
  Age: 70 Year
  Sex: Female

DRUGS (10)
  1. AVANDIA [Suspect]
     Dosage: 4MG PER DAY
     Route: 048
     Dates: start: 20030913, end: 20070612
  2. ASPIRIN [Concomitant]
  3. TOPROL-XL [Concomitant]
  4. DIOVAN [Concomitant]
  5. VYTORIN [Concomitant]
  6. COQ10 [Concomitant]
  7. CALCITRATE [Concomitant]
  8. MAGNESIUM SULFATE [Concomitant]
  9. OCUVITE [Concomitant]
  10. UNSPECIFIED MEDICATION [Concomitant]

REACTIONS (1)
  - MYOCARDIAL INFARCTION [None]
